FAERS Safety Report 9194044 (Version 2)
Quarter: 2013Q2

REPORT INFORMATION
  Report Type: Spontaneous
  Country: US (occurrence: US)
  Receive Date: 20130327
  Receipt Date: 20130403
  Transmission Date: 20140414
  Serious: Yes (Other)
  Sender: FDA-Public Use
  Company Number: US-PFIZER INC-2013094661

PATIENT
  Age: 22 Year
  Sex: Female

DRUGS (4)
  1. CYTARABINE [Suspect]
     Indication: ACUTE MYELOID LEUKAEMIA
     Dosage: 200 MG, UNK
     Route: 042
  2. CYTARABINE [Suspect]
     Dosage: 200 MG, WEEKLY
     Route: 042
  3. THIOGUANINE [Suspect]
     Indication: ACUTE MYELOID LEUKAEMIA
     Dosage: 160 MG, 1X/DAY (DAILY)
     Route: 048
  4. THIOGUANINE [Suspect]
     Dosage: 120 MG, CYCLIC (DAILY FOR 5 DAYS PER WEEK)
     Route: 048

REACTIONS (1)
  - Haemorrhage [Unknown]
